FAERS Safety Report 10223884 (Version 2)
Quarter: 2014Q2

REPORT INFORMATION
  Report Type: Spontaneous
  Country: US (occurrence: US)
  Receive Date: 20140609
  Receipt Date: 20140626
  Transmission Date: 20141212
  Serious: Yes (Other)
  Sender: FDA-Public Use
  Company Number: US-JNJFOC-20140600381

PATIENT
  Sex: Female
  Weight: 63.5 kg

DRUGS (12)
  1. NUCYNTA IR [Suspect]
     Indication: POST-TRAUMATIC PAIN
     Dosage: 75 MG EVERY 6 HOURS
     Route: 048
     Dates: start: 2013, end: 201401
  2. NUCYNTA IR [Suspect]
     Indication: POST-TRAUMATIC PAIN
     Dosage: 50 MG THREE TIMES A DAY
     Route: 048
     Dates: start: 2012, end: 2012
  3. NUCYNTA IR [Suspect]
     Indication: POST-TRAUMATIC PAIN
     Dosage: 100 MG THREE TIMES A DAY
     Route: 048
     Dates: start: 2012, end: 201305
  4. NUCYNTA IR [Suspect]
     Indication: POST-TRAUMATIC PAIN
     Dosage: (75MG + 75MG) EVERY 6 HOURS
     Route: 048
     Dates: start: 201401, end: 2014
  5. NUCYNTA IR [Suspect]
     Indication: MENINGITIS VIRAL
     Dosage: 75 MG EVERY 6 HOURS
     Route: 048
     Dates: start: 2013, end: 201401
  6. NUCYNTA IR [Suspect]
     Indication: MENINGITIS VIRAL
     Dosage: 50 MG THREE TIMES A DAY
     Route: 048
     Dates: start: 2012, end: 2012
  7. NUCYNTA IR [Suspect]
     Indication: MENINGITIS VIRAL
     Dosage: 100 MG THREE TIMES A DAY
     Route: 048
     Dates: start: 2012, end: 201305
  8. NUCYNTA IR [Suspect]
     Indication: MENINGITIS VIRAL
     Dosage: (75MG + 75MG) EVERY 6 HOURS
     Route: 048
     Dates: start: 201401, end: 2014
  9. AMBIEN CR [Concomitant]
     Indication: INSOMNIA
     Dosage: AT NIGHT
     Route: 048
     Dates: start: 2009
  10. HYDROXYZINE [Concomitant]
     Indication: SLEEP DISORDER
     Dosage: 25MG AT NIGHT
     Route: 048
     Dates: start: 2013
  11. MAXALT [Concomitant]
     Indication: MIGRAINE
     Route: 048
     Dates: start: 2009
  12. ZOFRAN [Concomitant]
     Indication: NAUSEA
     Dosage: AS NEEDED
     Route: 048
     Dates: start: 2011

REACTIONS (4)
  - Spondylitis [Not Recovered/Not Resolved]
  - Drug dependence [Unknown]
  - Back pain [Unknown]
  - Drug ineffective [Recovered/Resolved]
